FAERS Safety Report 5256969-9 (Version None)
Quarter: 2007Q1

REPORT INFORMATION
  Report Type: 
  Country: None (occurrence: None)
  Receive Date: 20070307
  Receipt Date: 20070305
  Transmission Date: 20070707
  Serious: Yes (Other)
  Sender: FDA-Public Use
  Company Number: CN-BRISTOL-MYERS SQUIBB COMPANY-13658430

PATIENT

DRUGS (3)
  1. FOSINOPRIL SODIUM [Suspect]
     Indication: HYPERTENSION
     Route: 048
  2. AMLODIPINE [Suspect]
     Indication: HYPERTENSION
  3. BISOPROLOL [Concomitant]
     Indication: HYPERTENSION

REACTIONS (3)
  - DRUG INTERACTION [None]
  - HEPATIC FUNCTION ABNORMAL [None]
  - JAUNDICE [None]
